FAERS Safety Report 12133927 (Version 1)
Quarter: 2016Q1

REPORT INFORMATION
  Report Type: Spontaneous
  Country: US (occurrence: US)
  Receive Date: 20160301
  Receipt Date: 20160301
  Transmission Date: 20160526
  Serious: No
  Sender: FDA-Public Use
  Company Number: US-INSYS THERAPEUTICS, INC-INS201505-000181

PATIENT
  Age: 41 Year
  Sex: Female

DRUGS (4)
  1. SUBSYS [Suspect]
     Active Substance: FENTANYL
     Indication: MYOSITIS
  2. SUBSYS [Suspect]
     Active Substance: FENTANYL
     Indication: MYALGIA
  3. SUBSYS [Suspect]
     Active Substance: FENTANYL
     Indication: FIBROMYALGIA
  4. SUBSYS [Suspect]
     Active Substance: FENTANYL
     Indication: SARCOIDOSIS

REACTIONS (2)
  - Off label use [Unknown]
  - Application site pain [Recovered/Resolved]

NARRATIVE: CASE EVENT DATE: 20150420
